FAERS Safety Report 7612909-6 (Version None)
Quarter: 2011Q3

REPORT INFORMATION
  Report Type: 
  Country: None (occurrence: None)
  Receive Date: 20110708
  Receipt Date: 20110623
  Transmission Date: 20111222
  Serious: Yes (Disabling)
  Sender: FDA-Public Use
  Company Number: TCI2011A03507

PATIENT
  Age: 65 Year
  Sex: Male

DRUGS (5)
  1. ASPIRIN [Concomitant]
  2. ACTOS [Suspect]
     Indication: TYPE 2 DIABETES MELLITUS
     Dosage: 15 MG (15 MG, 1 IN 1 D), PER ORAL, 30 MG (30 MG, 1 IN 1 D), PER ORAL
     Route: 048
     Dates: start: 20030228, end: 20110613
  3. ACTOS [Suspect]
     Indication: TYPE 2 DIABETES MELLITUS
     Dosage: 15 MG (15 MG, 1 IN 1 D), PER ORAL, 30 MG (30 MG, 1 IN 1 D), PER ORAL
     Route: 048
     Dates: start: 20030210, end: 20030227
  4. AMARYL [Concomitant]
  5. ACARBOSE [Concomitant]

REACTIONS (1)
  - BLADDER CANCER [None]
